FAERS Safety Report 6887859-3 (Version None)
Quarter: 2010Q3

REPORT INFORMATION
  Report Type: 
  Country: None (occurrence: None)
  Receive Date: 20100708
  Receipt Date: 20100224
  Transmission Date: 20110219
  Serious: Yes (Other)
  Sender: FDA-Public Use
  Company Number: 2010025362

PATIENT
  Sex: Male
  Weight: 82 kg

DRUGS (1)
  1. CHANTIX [Suspect]
     Indication: SMOKING CESSATION THERAPY
     Dosage: ORAL
     Route: 048
     Dates: start: 20090101, end: 20090101

REACTIONS (4)
  - AGGRESSION [None]
  - FEAR [None]
  - HALLUCINATION [None]
  - HALLUCINATION, AUDITORY [None]
